FAERS Safety Report 25789871 (Version 2)
Quarter: 2025Q3

REPORT INFORMATION
  Report Type: Spontaneous
  Country: TW (occurrence: TW)
  Receive Date: 20250911
  Receipt Date: 20250923
  Transmission Date: 20251021
  Serious: Yes (Other)
  Sender: CSL BEHRING
  Company Number: TW-ROCHE-10000375604

PATIENT
  Age: 75 Year
  Sex: Male

DRUGS (8)
  1. MIRCERA [Suspect]
     Active Substance: METHOXY POLYETHYLENE GLYCOL-EPOETIN BETA
     Indication: End stage renal disease
     Route: 065
     Dates: start: 20231219
  2. ERYTHROPOIETIN [Suspect]
     Active Substance: ERYTHROPOIETIN
     Indication: Product used for unknown indication
     Dosage: 5000 IU, QW
     Route: 065
     Dates: start: 20250526
  3. ERYTHROPOIETIN [Suspect]
     Active Substance: ERYTHROPOIETIN
     Dosage: 5000 IU, QOW
     Route: 065
  4. LINAGLIPTIN [Concomitant]
     Active Substance: LINAGLIPTIN
     Indication: End stage renal disease
     Dates: start: 20250627, end: 20250821
  5. FERROUS FUMARATE [Concomitant]
     Active Substance: FERROUS FUMARATE
     Indication: End stage renal disease
     Dates: start: 20250728, end: 20250824
  6. PENTOXIFYLLINE [Concomitant]
     Active Substance: PENTOXIFYLLINE
     Indication: End stage renal disease
     Dates: start: 20250627, end: 20250821
  7. VALSARTAN [Concomitant]
     Active Substance: VALSARTAN
     Indication: End stage renal disease
     Dates: start: 20250627, end: 20250821
  8. PITAVASTATIN CALCIUM [Concomitant]
     Active Substance: PITAVASTATIN CALCIUM
     Indication: End stage renal disease
     Dates: start: 20250627, end: 20250724

REACTIONS (3)
  - Aplasia pure red cell [Unknown]
  - Haemoglobin decreased [Unknown]
  - Bone marrow failure [Unknown]
